FAERS Safety Report 12008013 (Version 1)
Quarter: 2016Q1

REPORT INFORMATION
  Report Type: Spontaneous
  Country: US (occurrence: US)
  Receive Date: 20160205
  Receipt Date: 20160205
  Transmission Date: 20160526
  Serious: No
  Sender: FDA-Public Use
  Company Number: US-BIOGEN-146432

PATIENT
  Age: 40 Year
  Sex: Female
  Weight: 59.02 kg

DRUGS (2)
  1. AVONEX [Suspect]
     Active Substance: INTERFERON BETA-1A
     Indication: MULTIPLE SCLEROSIS
     Route: 030
     Dates: start: 199608, end: 200107
  2. BACLOFEN. [Concomitant]
     Active Substance: BACLOFEN
     Indication: MULTIPLE SCLEROSIS

REACTIONS (12)
  - Injection site abscess [Recovered/Resolved with Sequelae]
  - Dehydration [Not Recovered/Not Resolved]
  - Influenza like illness [Unknown]
  - Anxiety [Recovered/Resolved with Sequelae]
  - Pyrexia [Unknown]
  - Cellulitis [Recovered/Resolved]
  - White blood cell count increased [Not Recovered/Not Resolved]
  - Multiple sclerosis [Not Recovered/Not Resolved]
  - Spinal cord disorder [Recovered/Resolved with Sequelae]
  - Carpal tunnel syndrome [Not Recovered/Not Resolved]
  - Arthralgia [Unknown]
  - Muscle atrophy [Recovered/Resolved with Sequelae]

NARRATIVE: CASE EVENT DATE: 1999
